FAERS Safety Report 19595970 (Version 1)
Quarter: 2021Q3

REPORT INFORMATION
  Report Type: Report from Study
  Country: DE (occurrence: DE)
  Receive Date: 20210722
  Receipt Date: 20210722
  Transmission Date: 20211014
  Serious: Yes (Other)
  Sender: FDA-Public Use
  Company Number: DE-MYLANLABS-2021M1044626

PATIENT
  Age: 16 Year
  Sex: Male

DRUGS (2)
  1. SERTRALINE [Suspect]
     Active Substance: SERTRALINE HYDROCHLORIDE
     Dosage: 50 MILLIGRAM, QD
     Route: 065
  2. SERTRALINE [Suspect]
     Active Substance: SERTRALINE HYDROCHLORIDE
     Indication: INTERMITTENT EXPLOSIVE DISORDER
     Dosage: 25 MILLIGRAM, QD
     Route: 065

REACTIONS (5)
  - Sleep disorder [Unknown]
  - Behaviour disorder [Unknown]
  - Adjustment disorder [Unknown]
  - Off label use [Unknown]
  - Condition aggravated [Unknown]
